FAERS Safety Report 5376314-8 (Version None)
Quarter: 2007Q3

REPORT INFORMATION
  Report Type: 
  Country: None (occurrence: None)
  Receive Date: 20070702
  Receipt Date: 20070628
  Transmission Date: 20080115
  Serious: Yes (Death, Life-Threatening)
  Sender: FDA-Public Use
  Company Number: HQWYE978404MAY07

PATIENT
  Sex: Male
  Weight: 101 kg

DRUGS (3)
  1. RAPAMUNE [Suspect]
     Indication: PROPHYLAXIS AGAINST TRANSPLANT REJECTION
     Route: 048
     Dates: start: 20050420
  2. TACROLIMUS [Suspect]
  3. ZENAPAX [Suspect]

REACTIONS (1)
  - PULMONARY EMBOLISM [None]
